FAERS Safety Report 7215266-2 (Version None)
Quarter: 2011Q1

REPORT INFORMATION
  Report Type: 
  Country: None (occurrence: None)
  Receive Date: 20110107
  Receipt Date: 20110104
  Transmission Date: 20110831
  Serious: Yes (Death)
  Sender: FDA-Public Use
  Company Number: US-KINGPHARMUSA00001-K201100018

PATIENT
  Age: 42 Year
  Sex: Female

DRUGS (2)
  1. SKELAXIN [Suspect]
     Indication: COMPLETED SUICIDE
     Dosage: UNK
     Route: 048
  2. ACETAMINOPHEN AND TRAMADOL HCL [Suspect]
     Indication: COMPLETED SUICIDE
     Dosage: UNK
     Route: 048

REACTIONS (2)
  - COMPLETED SUICIDE [None]
  - DRUG ABUSE [None]
